FAERS Safety Report 8942574 (Version 2)
Quarter: 2012Q4

REPORT INFORMATION
  Report Type: 
  Country: US (occurrence: US)
  Receive Date: 20121121
  Receipt Date: 20121212
  Transmission Date: 20130627
  Serious: Yes (Hospitalization)
  Sender: FDA-Public Use
  Company Number: US-ASTELLAS-1106428

PATIENT
  Sex: Female

DRUGS (2)
  1. TARCEVA [Suspect]
     Indication: MALIGNANT RESPIRATORY TRACT NEOPLASM
     Route: 048
     Dates: start: 20050204, end: 20050321
  2. TARCEVA [Suspect]
     Indication: NON-SMALL CELL LUNG CANCER RECURRENT

REACTIONS (4)
  - Metastases to central nervous system [Unknown]
  - Drug ineffective [Unknown]
  - Haemoptysis [Unknown]
  - Malaise [Unknown]
